FAERS Safety Report 5427059-7 (Version None)
Quarter: 2007Q3

REPORT INFORMATION
  Report Type: 
  Country: None (occurrence: None)
  Receive Date: 20070824
  Receipt Date: 20070824
  Transmission Date: 20080115
  Serious: Yes (Life-Threatening)
  Sender: FDA-Public Use
  Company Number: None

PATIENT
  Sex: Male
  Weight: 113 kg

DRUGS (17)
  1. HEPARIN [Suspect]
     Indication: ANTICOAGULANT THERAPY
     Dosage: 28000 UNITS IV INTRA OP
     Route: 042
  2. HEPARIN [Suspect]
     Indication: CARDIAC OPERATION
     Dosage: 28000 UNITS IV INTRA OP
     Route: 042
  3. GENTAMICIN [Concomitant]
  4. RANITIDINE [Concomitant]
  5. VANCOMYCIN [Concomitant]
  6. INSULIN [Concomitant]
  7. ASPIRIN [Concomitant]
  8. LANSOPRAZOLE [Concomitant]
  9. FUROSEMIDE [Concomitant]
  10. MIDAZOLAM HCL [Concomitant]
  11. FENTANYL [Concomitant]
  12. LORAZEPAM [Concomitant]
  13. MILRINONE [Concomitant]
  14. NICARDIPINE HYDROCHLORIDE [Concomitant]
  15. PHENYLEPHRINE [Concomitant]
  16. AMIODARONE [Concomitant]
  17. EPINEPHRINE [Concomitant]

REACTIONS (5)
  - GASTRIC DISORDER [None]
  - HEPARIN-INDUCED THROMBOCYTOPENIA [None]
  - ISCHAEMIA [None]
  - POST PROCEDURAL HAEMORRHAGE [None]
  - UPPER GASTROINTESTINAL HAEMORRHAGE [None]
